FAERS Safety Report 8764986 (Version 2)
Quarter: 2012Q4

REPORT INFORMATION
  Report Type: 
  Country: AR (occurrence: AR)
  Receive Date: 20120902
  Receipt Date: 20120912
  Transmission Date: 20130627
  Serious: Yes (Other)
  Sender: FDA-Public Use
  Company Number: AR-AMGEN-ARGSP2012054659

PATIENT
  Age: 35 Year
  Sex: Female

DRUGS (8)
  1. ENBREL [Suspect]
     Indication: RHEUMATOID ARTHRITIS
     Dosage: UNK, weekly
     Route: 058
     Dates: start: 20110527, end: 20120822
  2. ENBREL [Suspect]
     Dosage: 50 mg, weekly
     Route: 058
     Dates: start: 20110527, end: 20120822
  3. OMEPRAZOLE [Concomitant]
     Dosage: UNK
     Route: 048
  4. LEVOTHYROXINE [Concomitant]
     Dosage: UNK
     Route: 048
  5. MEPREDNISONE [Concomitant]
     Dosage: UNK
     Route: 048
  6. HYDROXYCHLOROQUINE [Concomitant]
     Dosage: UNK
     Route: 048
  7. RIVOTRIL [Concomitant]
     Dosage: UNK
     Route: 048
  8. CALCIUM [Concomitant]
     Dosage: UNK
     Route: 048

REACTIONS (5)
  - Urinary tract infection [Not Recovered/Not Resolved]
  - Furuncle [Recovered/Resolved]
  - Pain in extremity [Not Recovered/Not Resolved]
  - Feeling cold [Recovered/Resolved]
  - Paraesthesia [Not Recovered/Not Resolved]
